FAERS Safety Report 22161523 (Version 16)
Quarter: 2025Q4

REPORT INFORMATION
  Report Type: Spontaneous
  Country: US (occurrence: US)
  Receive Date: 20230331
  Receipt Date: 20251009
  Transmission Date: 20260118
  Serious: Yes (Hospitalization, Other)
  Sender: PFIZER
  Company Number: US-PFIZER INC-202201005223

PATIENT
  Age: 75 Year
  Sex: Female

DRUGS (4)
  1. IBRANCE [Suspect]
     Active Substance: PALBOCICLIB
     Indication: Breast cancer metastatic
     Dosage: EVERY NIGHT
     Route: 048
  2. IBRANCE [Suspect]
     Active Substance: PALBOCICLIB
     Dosage: 1-28 DAYS, THEN 7 DAYS OFF/TAKE 7 DAYS OFF BEFORE STARTING NEXT CYCLE
     Route: 048
  3. IBRANCE [Suspect]
     Active Substance: PALBOCICLIB
     Dosage: ON 3WEEKS, OFF 1 WEEK, THEN REPEAT/21 DAYS ON 7 DAYS OFF
     Route: 048
  4. IBRANCE [Suspect]
     Active Substance: PALBOCICLIB
     Dosage: TAKE 1 TABLET (125 MG TOTAL) BY MOUTH DAILY TABLETS CAN BE TAKEN WITH OR WITHOUT FOOD. TAKE 7 DAYS O
     Route: 048

REACTIONS (4)
  - Spinal operation [Unknown]
  - Rheumatoid arthritis [Unknown]
  - Off label use [Unknown]
  - Incorrect dose administered [Unknown]
